FAERS Safety Report 6430667-8 (Version None)
Quarter: 2009Q4

REPORT INFORMATION
  Report Type: 
  Country: None (occurrence: None)
  Receive Date: 20091106
  Receipt Date: 20091104
  Transmission Date: 20100525
  Serious: Yes (Death, Hospitalization)
  Sender: FDA-Public Use
  Company Number: B0601680A

PATIENT
  Age: 71 Year
  Sex: Female
  Weight: 55 kg

DRUGS (4)
  1. ARIXTRA [Suspect]
     Indication: THROMBOSIS
     Dosage: 7.5MG PER DAY
     Route: 058
     Dates: start: 20090717, end: 20090812
  2. CALCIPARINE [Suspect]
     Indication: THROMBOSIS
     Dosage: .8ML PER DAY
     Route: 058
     Dates: start: 20090808, end: 20090811
  3. CHEMOTHERAPY [Concomitant]
     Indication: RENAL CANCER METASTATIC
     Dosage: 25MG PER DAY
     Route: 042
     Dates: start: 20090813, end: 20090813
  4. ORGARAN [Concomitant]
     Indication: THROMBOSIS
     Dosage: 1500UNIT TWICE PER DAY
     Route: 065
     Dates: start: 20090801

REACTIONS (2)
  - INCORRECT DRUG ADMINISTRATION DURATION [None]
  - THROMBOCYTOPENIA [None]
